FAERS Safety Report 23257742 (Version 1)
Quarter: 2023Q4

REPORT INFORMATION
  Report Type: Spontaneous
  Country: US (occurrence: US)
  Receive Date: 20231204
  Receipt Date: 20231204
  Transmission Date: 20240110
  Serious: Yes (Other)
  Sender: FDA-Public Use
  Company Number: US-PFIZER INC-202300405632

PATIENT
  Sex: Female

DRUGS (1)
  1. ESTRING [Suspect]
     Active Substance: ESTRADIOL
     Dosage: I HAVE HAD IT IN FOR 6 MONTHS
     Route: 067
     Dates: start: 202306

REACTIONS (7)
  - Illness [Unknown]
  - Malaise [Unknown]
  - Urinary tract infection [Unknown]
  - Urinary tract infection fungal [Unknown]
  - Muscle spasms [Unknown]
  - Device use issue [Unknown]
  - Device difficult to use [Unknown]

NARRATIVE: CASE EVENT DATE: 20230101
